FAERS Safety Report 9848174 (Version 1)
Quarter: 2014Q1

REPORT INFORMATION
  Report Type: Spontaneous
  Country: US (occurrence: None)
  Receive Date: 20140123
  Receipt Date: 20140123
  Transmission Date: 20141002
  Serious: No
  Sender: FDA-Public Use
  Company Number: None

PATIENT
  Sex: Male

DRUGS (1)
  1. OFIRMEV [Suspect]
     Indication: PAIN MANAGEMENT
     Route: 042

REACTIONS (5)
  - Toxicity to various agents [None]
  - Hepatotoxicity [None]
  - Blood alkaline phosphatase increased [None]
  - Alanine aminotransferase increased [None]
  - Aspartate aminotransferase increased [None]
